FAERS Safety Report 16664161 (Version 6)
Quarter: 2022Q2

REPORT INFORMATION
  Report Type: Spontaneous
  Country: US (occurrence: US)
  Receive Date: 20190802
  Receipt Date: 20220519
  Transmission Date: 20220720
  Serious: No
  Sender: FDA-Public Use
  Company Number: US-PFIZER INC-2019162291

PATIENT
  Age: 17 Year
  Sex: Male

DRUGS (16)
  1. PRISTIQ EXTENDED-RELEASE [Suspect]
     Active Substance: DESVENLAFAXINE SUCCINATE
     Indication: Anxiety
     Dosage: 150 MG, DAILY (TAKE 3 TABLET BY MOUTH DAILY WITH BREAKFAST IN THE MORNING)
     Route: 048
     Dates: start: 20190409
  2. PRISTIQ EXTENDED-RELEASE [Suspect]
     Active Substance: DESVENLAFAXINE SUCCINATE
     Indication: Affective disorder
     Dosage: UNK, DAILY (2 TO 3 TABLETS PER DAY)
  3. PRISTIQ EXTENDED-RELEASE [Suspect]
     Active Substance: DESVENLAFAXINE SUCCINATE
     Indication: Obsessive-compulsive disorder
     Dosage: 50 MG, DAILY
     Route: 048
  4. PRISTIQ EXTENDED-RELEASE [Suspect]
     Active Substance: DESVENLAFAXINE SUCCINATE
     Indication: Major depression
     Dosage: 1 DF, 1X/DAY (ONE TABLET PER DAY)
     Dates: start: 20150806
  5. PRISTIQ EXTENDED-RELEASE [Suspect]
     Active Substance: DESVENLAFAXINE SUCCINATE
     Indication: Generalised anxiety disorder
     Dosage: 50 MG, 2X/DAY
     Dates: start: 20151103, end: 20180612
  6. PRISTIQ EXTENDED-RELEASE [Suspect]
     Active Substance: DESVENLAFAXINE SUCCINATE
     Indication: Post-traumatic stress disorder
     Dosage: 150 MG, 1X/DAY
     Dates: start: 20180612
  7. PRISTIQ EXTENDED-RELEASE [Suspect]
     Active Substance: DESVENLAFAXINE SUCCINATE
     Dosage: 50 MG, 3X/DAY
  8. PRISTIQ EXTENDED-RELEASE [Suspect]
     Active Substance: DESVENLAFAXINE SUCCINATE
     Dosage: 150 MG, 1X/DAY (3 TABLETS (150 MG) BY MOUTH DAILY WITH BREAKFAST/IN THE MORNING)
     Route: 048
     Dates: start: 20201208
  9. PRISTIQ EXTENDED-RELEASE [Suspect]
     Active Substance: DESVENLAFAXINE SUCCINATE
     Dosage: 50 MG, 4X/DAY
     Route: 048
     Dates: start: 20220128
  10. PRISTIQ EXTENDED-RELEASE [Suspect]
     Active Substance: DESVENLAFAXINE SUCCINATE
     Dosage: 25 MG, DAILY(TAKING 8 OF A DAY)
     Route: 048
     Dates: start: 20220128
  11. BUSPIRONE [Concomitant]
     Active Substance: BUSPIRONE HYDROCHLORIDE
     Indication: Obsessive-compulsive disorder
     Dosage: 15 MG, DAILY (5 MG IN THE MORNING AND 10 MG AT NIGHT BY MOUTH)
     Route: 048
     Dates: start: 201610
  12. LAMICTAL XR [Concomitant]
     Active Substance: LAMOTRIGINE
     Indication: Affective disorder
     Dosage: 500 MG, 1X/DAY
     Dates: start: 201810
  13. LAMICTAL XR [Concomitant]
     Active Substance: LAMOTRIGINE
     Indication: Anxiety
  14. ACETYLCYSTEINE\LEVOMEFOLATE CALCIUM\METHYLCOBALAMIN [Concomitant]
     Active Substance: ACETYLCYSTEINE\LEVOMEFOLATE CALCIUM\METHYLCOBALAMIN
     Indication: Metabolic disorder
     Dosage: 2 DF, 1X/DAY (2 TABLETS UNKNOWN DOSE DAILY IN THE MORNING)
     Dates: start: 201807
  15. CLONAZEPAM [Concomitant]
     Active Substance: CLONAZEPAM
     Indication: Anxiety
     Dosage: 0.5 MG, AS NEEDED
     Dates: start: 201303
  16. CLONAZEPAM [Concomitant]
     Active Substance: CLONAZEPAM
     Indication: Panic attack

REACTIONS (5)
  - Weight increased [Unknown]
  - Body height increased [Unknown]
  - Off label use [Unknown]
  - Prescribed overdose [Unknown]
  - Product dispensing error [Unknown]
